FAERS Safety Report 22025217 (Version 1)
Quarter: 2023Q1

REPORT INFORMATION
  Report Type: Spontaneous
  Country: US (occurrence: None)
  Receive Date: 20230223
  Receipt Date: 20230223
  Transmission Date: 20230417
  Serious: No
  Sender: FDA-Public Use
  Company Number: US-ROCHE-3103662

PATIENT
  Sex: Female

DRUGS (2)
  1. XOLAIR [Suspect]
     Active Substance: OMALIZUMAB
     Indication: Idiopathic urticaria
     Route: 058
     Dates: start: 20220401
  2. XOLAIR [Suspect]
     Active Substance: OMALIZUMAB

REACTIONS (11)
  - Pruritus [Unknown]
  - Nasal congestion [Unknown]
  - Drainage [Unknown]
  - Upper-airway cough syndrome [Unknown]
  - Sinus pain [Unknown]
  - Facial pain [Unknown]
  - Rhinorrhoea [Unknown]
  - Migraine [Unknown]
  - Hypovitaminosis [Unknown]
  - Sinusitis bacterial [Unknown]
  - Rash erythematous [Unknown]
